FAERS Safety Report 5206372-2 (Version None)
Quarter: 2007Q1

REPORT INFORMATION
  Report Type: 
  Country: None (occurrence: None)
  Receive Date: 20070111
  Receipt Date: 20070103
  Transmission Date: 20070707
  Serious: Yes (Disabling, Other)
  Sender: FDA-Public Use
  Company Number: US-PFIZER INC-2005159028

PATIENT
  Sex: Male
  Weight: 107.5 kg

DRUGS (8)
  1. VIAGRA [Suspect]
     Indication: ERECTILE DYSFUNCTION
  2. RANITIDINE [Concomitant]
  3. CYANOCOBALAMIN [Concomitant]
  4. FOLIC ACID [Concomitant]
  5. GATIFLOXACIN [Concomitant]
  6. PYRIDOXINE HCL [Concomitant]
  7. ZINC [Concomitant]
  8. SELENIUM SULFIDE [Concomitant]

REACTIONS (14)
  - ATRIOVENTRICULAR BLOCK FIRST DEGREE [None]
  - BLINDNESS [None]
  - BLOOD HOMOCYSTEINE INCREASED [None]
  - BLOOD TRIGLYCERIDES INCREASED [None]
  - CAROTID ARTERIOSCLEROSIS [None]
  - DEPOSIT EYE [None]
  - FUNDOSCOPY ABNORMAL [None]
  - HAEMATURIA [None]
  - HYPERTENSION [None]
  - OCULAR VASCULAR DISORDER [None]
  - RETINAL ARTERY OCCLUSION [None]
  - RETINAL DISORDER [None]
  - TRANSIENT ISCHAEMIC ATTACK [None]
  - VISION BLURRED [None]
